FAERS Safety Report 4870238-8 (Version None)
Quarter: 2005Q4

REPORT INFORMATION
  Report Type: 
  Country: None (occurrence: None)
  Receive Date: 20051228
  Receipt Date: 20051213
  Transmission Date: 20060501
  Serious: Yes (Hospitalization)
  Sender: FDA-Public Use
  Company Number: 6814

PATIENT
  Age: 78 Year
  Sex: Female

DRUGS (14)
  1. PROPAFENONE 150 MG TABLETS, ETHEX [Suspect]
     Indication: ATRIAL FIBRILLATION
     Dosage: 1 TABLET PO TID
     Route: 048
  2. ZITHROMAX [Concomitant]
  3. MEDROL [Concomitant]
  4. PROTONIX [Concomitant]
  5. GLUCOPHAGE XR [Concomitant]
  6. LOPID [Concomitant]
  7. PRAVACHOL [Concomitant]
  8. ATENOLOL [Concomitant]
  9. ENALAPRIL [Concomitant]
  10. XANAX [Concomitant]
  11. NORVASC [Concomitant]
  12. NITRO-BID [Concomitant]
  13. ASPIRIN [Concomitant]
  14. FUROSEMIDE [Concomitant]

REACTIONS (1)
  - INAPPROPRIATE ANTIDIURETIC HORMONE SECRETION [None]
